FAERS Safety Report 25913297 (Version 2)
Quarter: 2025Q4

REPORT INFORMATION
  Report Type: Report from Study
  Country: US (occurrence: US)
  Receive Date: 20251013
  Receipt Date: 20251209
  Transmission Date: 20260118
  Serious: Yes (Hospitalization)
  Sender: ABBVIE
  Company Number: US-ABBVIE-6498830

PATIENT
  Age: 78 Year
  Sex: Male

DRUGS (1)
  1. SKYRIZI [Suspect]
     Active Substance: RISANKIZUMAB-RZAA
     Indication: Crohn^s disease
     Route: 058
     Dates: start: 20231115

REACTIONS (6)
  - Cholecystectomy [Recovering/Resolving]
  - Chronic obstructive pulmonary disease [Recovering/Resolving]
  - Post lumbar puncture syndrome [Recovering/Resolving]
  - Pneumonia [Recovered/Resolved]
  - Coronary artery disease [Unknown]
  - Rheumatoid arthritis [Unknown]

NARRATIVE: CASE EVENT DATE: 20250101
